FAERS Safety Report 24218576 (Version 1)
Quarter: 2024Q3

REPORT INFORMATION
  Report Type: Spontaneous
  Country: US (occurrence: None)
  Receive Date: 20240815
  Receipt Date: 20240815
  Transmission Date: 20241016
  Serious: Yes (Other)
  Sender: Public
  Company Number: None

PATIENT
  Age: 43 Year
  Sex: Female
  Weight: 90.7 kg

DRUGS (1)
  1. NITAZOXANIDE [Suspect]
     Active Substance: NITAZOXANIDE
     Indication: Infection parasitic
     Dosage: FREQUENCY : TWICE A DAY;?
     Route: 048
     Dates: start: 20240810, end: 20240811

REACTIONS (6)
  - Flushing [None]
  - Muscle spasms [None]
  - Dystonia [None]
  - Swollen tongue [None]
  - Abdominal pain [None]
  - Diarrhoea [None]

NARRATIVE: CASE EVENT DATE: 20240812
